FAERS Safety Report 17461104 (Version 2)
Quarter: 2020Q1

REPORT INFORMATION
  Report Type: Spontaneous
  Country: UA (occurrence: UA)
  Receive Date: 20200226
  Receipt Date: 20200313
  Transmission Date: 20200409
  Serious: Yes (Hospitalization, Other)
  Sender: FDA-Public Use
  Company Number: UA-B.I. PHARMACEUTICALS,INC./RIDGEFIELD-2020-BI-009809

PATIENT
  Age: 48 Year
  Sex: Female

DRUGS (12)
  1. THYROXINE [Concomitant]
     Active Substance: LEVOTHYROXINE
     Indication: PRODUCT USED FOR UNKNOWN INDICATION
     Route: 048
  2. ASPIRIN [ACETYLSALICYLIC ACID] [Concomitant]
     Active Substance: ASPIRIN
     Indication: TRANSIENT ISCHAEMIC ATTACK
     Route: 048
  3. CERAXON [Concomitant]
     Active Substance: CITICOLINE
     Indication: PRODUCT USED FOR UNKNOWN INDICATION
     Route: 065
  4. CARDIKET [Concomitant]
     Active Substance: ISOSORBIDE DINITRATE
     Indication: TRANSIENT ISCHAEMIC ATTACK
     Route: 065
  5. SYNJARDY [Suspect]
     Active Substance: EMPAGLIFLOZIN\METFORMIN HYDROCHLORIDE
     Indication: TYPE 2 DIABETES MELLITUS
     Dosage: 12,5 MILLIGRAM
     Route: 048
     Dates: start: 20191213, end: 20200209
  6. FRAXIPARINE [Concomitant]
     Active Substance: NADROPARIN CALCIUM
     Indication: TRANSIENT ISCHAEMIC ATTACK
     Route: 065
  7. CORDARONE [Concomitant]
     Active Substance: AMIODARONE HYDROCHLORIDE
     Indication: TRANSIENT ISCHAEMIC ATTACK
     Route: 065
  8. LIRA [Concomitant]
     Indication: TRANSIENT ISCHAEMIC ATTACK
     Route: 048
  9. ROXERA [Concomitant]
     Active Substance: ROSUVASTATIN CALCIUM
     Indication: TRANSIENT ISCHAEMIC ATTACK
     Route: 048
  10. NOLPAZA [Concomitant]
     Active Substance: PANTOPRAZOLE SODIUM
     Indication: TRANSIENT ISCHAEMIC ATTACK
     Route: 048
  11. SIOFOR [Concomitant]
     Active Substance: METFORMIN HYDROCHLORIDE
     Indication: TYPE 2 DIABETES MELLITUS
     Route: 048
  12. CARVEDILOL. [Concomitant]
     Active Substance: CARVEDILOL
     Indication: TRANSIENT ISCHAEMIC ATTACK
     Dosage: 3,125 MILLIGRAM
     Route: 048

REACTIONS (5)
  - Nausea [Recovered/Resolved]
  - Coronary artery bypass [Unknown]
  - Ketoacidosis [Not Recovered/Not Resolved]
  - Dizziness [Recovered/Resolved]
  - Vomiting [Recovered/Resolved]

NARRATIVE: CASE EVENT DATE: 20200210
